FAERS Safety Report 4459882-X (Version None)
Quarter: 2004Q3

REPORT INFORMATION
  Report Type: 
  Country: None (occurrence: None)
  Receive Date: 20040928
  Receipt Date: 20030818
  Transmission Date: 20050211
  Serious: No
  Sender: FDA-Public Use
  Company Number: US-GLAXOSMITHKLINE-A0422315A

PATIENT
  Age: 74 Year
  Sex: Female

DRUGS (4)
  1. SALMETEROL XINAFOATE [Suspect]
     Indication: ASTHMA
     Dosage: 50BLS TWICE PER DAY
     Route: 055
     Dates: start: 20030701, end: 20030817
  2. LIPITOR [Concomitant]
  3. CALCIUM [Concomitant]
  4. SYNTHROID [Concomitant]

REACTIONS (4)
  - DRUG INEFFECTIVE [None]
  - DYSPNOEA [None]
  - PHARMACEUTICAL PRODUCT COMPLAINT [None]
  - WHEEZING [None]
